FAERS Safety Report 7283160-7 (Version None)
Quarter: 2011Q1

REPORT INFORMATION
  Report Type: 
  Country: None (occurrence: None)
  Receive Date: 20110209
  Receipt Date: 20110127
  Transmission Date: 20110831
  Serious: Yes (Hospitalization, Other)
  Sender: FDA-Public Use
  Company Number: US-SANOFI-AVENTIS-2011SA002954

PATIENT
  Age: 78 Year
  Sex: Male
  Weight: 78.5 kg

DRUGS (11)
  1. WARFARIN [Interacting]
     Indication: ATRIAL FIBRILLATION
     Route: 065
  2. WARFARIN [Interacting]
     Route: 065
     Dates: start: 20101117
  3. PLAVIX [Suspect]
     Route: 048
     Dates: start: 20101127
  4. ASPIRIN [Suspect]
     Route: 065
     Dates: start: 20101115, end: 20101125
  5. METHYLPREDNISOLONE [Suspect]
     Route: 065
     Dates: start: 20101115, end: 20101208
  6. WARFARIN [Interacting]
     Indication: DEEP VEIN THROMBOSIS
     Route: 065
  7. MULTAQ [Interacting]
     Indication: ATRIAL FIBRILLATION
     Route: 048
     Dates: start: 20101125
  8. WARFARIN [Interacting]
     Route: 065
     Dates: start: 20101117
  9. ASPIRIN [Suspect]
     Route: 065
     Dates: start: 20101127
  10. PLAVIX [Suspect]
     Route: 048
     Dates: start: 20101115, end: 20101125
  11. LEVOFLOXACIN [Suspect]
     Route: 065
     Dates: start: 20101115, end: 20101206

REACTIONS (7)
  - CONTUSION [None]
  - HAEMOGLOBIN DECREASED [None]
  - CHRONIC OBSTRUCTIVE PULMONARY DISEASE [None]
  - CONDITION AGGRAVATED [None]
  - INTERNATIONAL NORMALISED RATIO [None]
  - HAEMORRHAGE [None]
  - DRUG INTERACTION [None]
